FAERS Safety Report 10057398 (Version 1)
Quarter: 2014Q2

REPORT INFORMATION
  Report Type: Spontaneous
  Country: GB (occurrence: GB)
  Receive Date: 20140403
  Receipt Date: 20140403
  Transmission Date: 20141212
  Serious: Yes (Hospitalization)
  Sender: FDA-Public Use
  Company Number: PHHY2014GB036223

PATIENT
  Age: 75 Year
  Sex: Female

DRUGS (11)
  1. CANDESARTAN [Concomitant]
     Dosage: UNK
  2. CLOPIDOGREL [Concomitant]
     Dosage: UNK
  3. FERROUS FUMARATE [Concomitant]
     Dosage: UNK
  4. GLYCERYL TRINITRATE [Concomitant]
     Dosage: UNK
  5. NICORANDIL [Concomitant]
     Dosage: UNK
  6. SALBUTAMOL [Concomitant]
     Dosage: UNK
  7. TIOTROPIUM BROMIDE [Concomitant]
     Dosage: UNK
  8. RAMIPRIL [Suspect]
     Indication: CARDIAC FAILURE
     Dosage: 5 MG, QD
     Route: 048
     Dates: end: 20140217
  9. SPIRONOLACTONE [Suspect]
     Indication: CARDIAC FAILURE
     Dosage: 50 MG, QD
     Route: 048
     Dates: end: 20140217
  10. ATENOLOL [Concomitant]
     Dosage: UNK
  11. ATORVASTATIN [Concomitant]
     Dosage: UNK

REACTIONS (2)
  - Hypercalcaemia [Unknown]
  - Hyperkalaemia [Recovered/Resolved]
